FAERS Safety Report 13299558 (Version 2)
Quarter: 2017Q1

REPORT INFORMATION
  Report Type: Spontaneous
  Country: US (occurrence: US)
  Receive Date: 20170306
  Receipt Date: 20170320
  Transmission Date: 20170428
  Serious: Yes (Disabling, Other)
  Sender: FDA-Public Use
  Company Number: US-ALLERGAN-1708499US

PATIENT
  Sex: Female

DRUGS (1)
  1. LEXAPRO [Suspect]
     Active Substance: ESCITALOPRAM OXALATE
     Indication: PRODUCT USED FOR UNKNOWN INDICATION
     Dosage: 20 MG, SINGLE
     Route: 048

REACTIONS (6)
  - Aphasia [Unknown]
  - Wrong drug administered [Unknown]
  - Immobile [Unknown]
  - Tinnitus [Recovered/Resolved]
  - Nausea [Unknown]
  - Paralysis [Unknown]
